FAERS Safety Report 4990725-1 (Version None)
Quarter: 2006Q2

REPORT INFORMATION
  Report Type: 
  Country: None (occurrence: None)
  Receive Date: 20060427
  Receipt Date: 20060420
  Transmission Date: 20061013
  Serious: Yes (Hospitalization)
  Sender: FDA-Public Use
  Company Number: S05-USA-04736-01

PATIENT
  Age: 64 Year
  Sex: Female
  Weight: 83.9154 kg

DRUGS (6)
  1. LEXAPRO [Suspect]
     Indication: ANXIETY DISORDER
     Dosage: 10 MG QD PO
     Route: 048
     Dates: start: 20050510, end: 20050808
  2. GLIPIZIDE [Concomitant]
  3. AVANDAMET (ROSGLITAZONE/METFORMIN) [Concomitant]
  4. LOTENSIN [Concomitant]
  5. MOBIC [Concomitant]
  6. ATIVAN [Concomitant]

REACTIONS (4)
  - ASTHENIA [None]
  - CEREBROVASCULAR ACCIDENT [None]
  - DIZZINESS [None]
  - HYPONATRAEMIA [None]
